FAERS Safety Report 26169090 (Version 1)
Quarter: 2025Q4

REPORT INFORMATION
  Report Type: Spontaneous
  Country: EU (occurrence: EU)
  Receive Date: 20251217
  Receipt Date: 20251217
  Transmission Date: 20260118
  Serious: Yes (Life-Threatening, Hospitalization, Other)
  Sender: AUROBINDO
  Company Number: EU-AEMPS-1783287

PATIENT
  Age: 56 Year
  Sex: Male

DRUGS (8)
  1. CARBOPLATIN [Suspect]
     Active Substance: CARBOPLATIN
     Indication: Lung adenocarcinoma stage IV
     Dosage: 1 CYCLE EVERY 3 WEEKS
     Dates: start: 20250225, end: 20250430
  2. PEMETREXED [Suspect]
     Active Substance: PEMETREXED
     Indication: Lung adenocarcinoma stage IV
     Dosage: 1 CYCLE EVERY 3 WEEKS
  3. KEYTRUDA [Suspect]
     Active Substance: PEMBROLIZUMAB
     Indication: Lung adenocarcinoma stage IV
     Dosage: 1 CYCLE EVERY 3 WEEKS
     Dates: start: 20250225, end: 20250430
  4. OMEPRAZOL CINFAMED 40 mg CAPSULAS DURAS GASTRORRESISTENTES, 56 c?psula [Concomitant]
     Indication: Prophylaxis
     Dosage: 1 DOSAGE FORM, ONCE A DAY
     Route: 061
     Dates: start: 20250225
  5. OPTOVITE B12 1.000 MICROGRAMOS SOLUCI?N INYECTABLE , 5 ampollas de 2 m [Concomitant]
     Indication: Anaemia
     Dosage: 1 INJECTION EVERY 60 DAYS
  6. TRELEGY ELLIPTA 92 MICROGRAMOS/55 MICROGRAMOS/22 MICROGRAMOS POLVO PAR [Concomitant]
     Indication: Product used for unknown indication
     Dosage: 1 INHALATION EVERY 24 HOURS
  7. VENTOLIN 100 microgramos/INHALACI?N SUSPENSI?N PARA INHALACI?N EN ENVA [Concomitant]
     Indication: Product used for unknown indication
     Dosage: 1 DOSAGE FORM, 3 TIMES A DAY
     Dates: start: 20240614
  8. ZOLICO 400 MICROGRAMOS COMPRIMIDOS , 28 comprimidos [Concomitant]
     Indication: Anaemia
     Dosage: 1 DOSAGE FORM, ONCE A DAY
     Route: 061
     Dates: start: 20250217

REACTIONS (3)
  - Erythema multiforme [Recovered/Resolved]
  - Acute kidney injury [Recovered/Resolved]
  - Pancreatitis acute [Recovered/Resolved]

NARRATIVE: CASE EVENT DATE: 20250501
